FAERS Safety Report 15635328 (Version 24)
Quarter: 2024Q3

REPORT INFORMATION
  Report Type: Spontaneous
  Country: CA (occurrence: CA)
  Receive Date: 20181120
  Receipt Date: 20240730
  Transmission Date: 20241016
  Serious: Yes (Life-Threatening, Hospitalization, Disabling, Other)
  Sender: BRISTOL MYERS SQUIBB
  Company Number: CA-BRISTOL-MYERS SQUIBB COMPANY-BMS-2018-105928

PATIENT
  Age: 59 Year
  Sex: Female
  Weight: 68 kg

DRUGS (545)
  1. ORENCIA [Suspect]
     Active Substance: ABATACEPT
     Indication: Rheumatoid arthritis
  2. ORENCIA [Suspect]
     Active Substance: ABATACEPT
     Route: 067
  3. ORENCIA [Suspect]
     Active Substance: ABATACEPT
     Route: 048
  4. ORENCIA [Suspect]
     Active Substance: ABATACEPT
     Indication: Rheumatoid arthritis
     Dosage: UNK
     Route: 042
  5. ORENCIA [Suspect]
     Active Substance: ABATACEPT
     Route: 058
  6. ORENCIA [Suspect]
     Active Substance: ABATACEPT
     Route: 058
  7. ORENCIA [Suspect]
     Active Substance: ABATACEPT
     Route: 058
  8. ORENCIA [Suspect]
     Active Substance: ABATACEPT
     Route: 048
  9. ORENCIA [Suspect]
     Active Substance: ABATACEPT
     Dosage: UNK
  10. ORENCIA [Suspect]
     Active Substance: ABATACEPT
     Dosage: UNK
     Route: 042
  11. ORENCIA [Suspect]
     Active Substance: ABATACEPT
  12. ORENCIA [Suspect]
     Active Substance: ABATACEPT
     Route: 058
  13. ORENCIA [Suspect]
     Active Substance: ABATACEPT
     Indication: Rheumatoid arthritis
     Dosage: UNK
     Route: 058
  14. ACTEMRA [Concomitant]
     Active Substance: TOCILIZUMAB
     Indication: Rheumatoid arthritis
  15. ACTEMRA [Concomitant]
     Active Substance: TOCILIZUMAB
     Route: 042
  16. ACTEMRA [Concomitant]
     Active Substance: TOCILIZUMAB
     Route: 058
  17. ACTEMRA [Concomitant]
     Active Substance: TOCILIZUMAB
     Route: 061
  18. ACTEMRA [Concomitant]
     Active Substance: TOCILIZUMAB
     Route: 042
  19. ACTEMRA [Concomitant]
     Active Substance: TOCILIZUMAB
     Route: 048
  20. ACTEMRA [Concomitant]
     Active Substance: TOCILIZUMAB
     Route: 042
  21. ACTEMRA [Concomitant]
     Active Substance: TOCILIZUMAB
     Route: 061
  22. ACTEMRA [Concomitant]
     Active Substance: TOCILIZUMAB
     Route: 042
  23. ACTEMRA [Concomitant]
     Active Substance: TOCILIZUMAB
     Route: 016
  24. ACTEMRA [Concomitant]
     Active Substance: TOCILIZUMAB
     Route: 058
  25. ACTEMRA [Concomitant]
     Active Substance: TOCILIZUMAB
  26. ACTEMRA [Concomitant]
     Active Substance: TOCILIZUMAB
  27. ACTEMRA [Concomitant]
     Active Substance: TOCILIZUMAB
     Route: 042
  28. ACTEMRA [Concomitant]
     Active Substance: TOCILIZUMAB
  29. ACTEMRA [Concomitant]
     Active Substance: TOCILIZUMAB
     Route: 042
  30. ARAVA [Concomitant]
     Active Substance: LEFLUNOMIDE
     Indication: Rheumatoid arthritis
     Dosage: UNK
  31. ARAVA [Concomitant]
     Active Substance: LEFLUNOMIDE
     Dosage: UNK
     Route: 048
  32. ADALIMUMAB [Concomitant]
     Active Substance: ADALIMUMAB\ISOPROPYL ALCOHOL
     Indication: Rheumatoid arthritis
     Dosage: 40 MILLIGRAM
     Route: 058
  33. ADALIMUMAB [Concomitant]
     Active Substance: ADALIMUMAB\ISOPROPYL ALCOHOL
     Route: 058
  34. ADALIMUMAB [Concomitant]
     Active Substance: ADALIMUMAB\ISOPROPYL ALCOHOL
     Indication: Rheumatoid arthritis
     Route: 058
  35. AZATHIOPRINE [Concomitant]
     Active Substance: AZATHIOPRINE
     Indication: Product used for unknown indication
  36. CIMZIA [Concomitant]
     Active Substance: CERTOLIZUMAB PEGOL
     Indication: Psoriasis
     Dosage: UNK
     Route: 058
  37. CIMZIA [Concomitant]
     Active Substance: CERTOLIZUMAB PEGOL
     Indication: Rheumatoid arthritis
     Dosage: UNK
  38. CIMZIA [Concomitant]
     Active Substance: CERTOLIZUMAB PEGOL
     Dosage: SOLUTION FOR INJECTION IN PRE-FILLED INJECTION
  39. CIMZIA [Concomitant]
     Active Substance: CERTOLIZUMAB PEGOL
     Dosage: SOLUTION FOR INJECTION IN PRE-FILLED SYRINGE
     Route: 058
  40. CIMZIA [Concomitant]
     Active Substance: CERTOLIZUMAB PEGOL
     Route: 058
  41. CIMZIA [Concomitant]
     Active Substance: CERTOLIZUMAB PEGOL
     Route: 048
  42. CIMZIA [Concomitant]
     Active Substance: CERTOLIZUMAB PEGOL
     Route: 058
  43. CERTOLIZUMAB PEGOL [Concomitant]
     Active Substance: CERTOLIZUMAB PEGOL
     Indication: Rheumatoid arthritis
     Route: 058
  44. CERTOLIZUMAB PEGOL [Concomitant]
     Active Substance: CERTOLIZUMAB PEGOL
     Route: 058
  45. CERTOLIZUMAB PEGOL [Concomitant]
     Active Substance: CERTOLIZUMAB PEGOL
  46. ENBREL [Concomitant]
     Active Substance: BENZYL ALCOHOL\ETANERCEPT
     Indication: Rheumatoid arthritis
  47. ENBREL [Concomitant]
     Active Substance: BENZYL ALCOHOL\ETANERCEPT
     Route: 058
  48. ENBREL [Concomitant]
     Active Substance: BENZYL ALCOHOL\ETANERCEPT
     Route: 058
  49. ENBREL [Concomitant]
     Active Substance: BENZYL ALCOHOL\ETANERCEPT
     Route: 058
  50. ENBREL [Concomitant]
     Active Substance: BENZYL ALCOHOL\ETANERCEPT
  51. ENBREL [Concomitant]
     Active Substance: BENZYL ALCOHOL\ETANERCEPT
     Route: 058
  52. ENBREL [Concomitant]
     Active Substance: BENZYL ALCOHOL\ETANERCEPT
     Route: 058
  53. ERELZI [Concomitant]
     Active Substance: ETANERCEPT-SZZS
     Indication: Rheumatoid arthritis
     Dosage: UNK
     Route: 058
  54. ERELZI [Concomitant]
     Active Substance: ETANERCEPT-SZZS
     Dosage: 50 MILLIGRAM, QWK
     Route: 058
  55. ERELZI [Concomitant]
     Active Substance: ETANERCEPT-SZZS
     Dosage: 50 FEMTOGRAM
  56. ERELZI [Concomitant]
     Active Substance: ETANERCEPT-SZZS
  57. ERELZI [Concomitant]
     Active Substance: ETANERCEPT-SZZS
  58. HUMIRA [Concomitant]
     Active Substance: ADALIMUMAB
     Indication: Rheumatoid arthritis
     Route: 058
  59. HUMIRA [Concomitant]
     Active Substance: ADALIMUMAB
     Indication: Psoriatic arthropathy
     Dosage: SOLUTION SUBCUTANEOUS
     Route: 058
  60. HUMIRA [Concomitant]
     Active Substance: ADALIMUMAB
     Route: 058
  61. HUMIRA [Concomitant]
     Active Substance: ADALIMUMAB
     Route: 058
  62. HUMIRA [Concomitant]
     Active Substance: ADALIMUMAB
     Route: 058
  63. HUMIRA [Concomitant]
     Active Substance: ADALIMUMAB
     Route: 058
  64. HUMIRA [Concomitant]
     Active Substance: ADALIMUMAB
     Route: 058
  65. HUMIRA [Concomitant]
     Active Substance: ADALIMUMAB
  66. HUMIRA [Concomitant]
     Active Substance: ADALIMUMAB
  67. HUMIRA [Concomitant]
     Active Substance: ADALIMUMAB
     Route: 058
  68. HUMIRA [Concomitant]
     Active Substance: ADALIMUMAB
     Route: 058
  69. HUMIRA [Concomitant]
     Active Substance: ADALIMUMAB
     Route: 058
  70. HUMIRA [Concomitant]
     Active Substance: ADALIMUMAB
     Route: 058
  71. METHOTREXATE [Concomitant]
     Active Substance: METHOTREXATE
     Indication: Rheumatoid arthritis
     Dosage: 20 MILLIGRAM
     Route: 048
  72. METHOTREXATE [Concomitant]
     Active Substance: METHOTREXATE
     Indication: Crohn^s disease
     Dosage: 20 MILLIGRAM, QWK
     Route: 048
  73. METHOTREXATE [Concomitant]
     Active Substance: METHOTREXATE
     Route: 058
  74. METHOTREXATE [Concomitant]
     Active Substance: METHOTREXATE
     Route: 048
  75. METHOTREXATE [Concomitant]
     Active Substance: METHOTREXATE
     Route: 048
  76. METHOTREXATE [Concomitant]
     Active Substance: METHOTREXATE
     Route: 048
  77. METHOTREXATE [Concomitant]
     Active Substance: METHOTREXATE
  78. METHOTREXATE [Concomitant]
     Active Substance: METHOTREXATE
     Route: 058
  79. METHOTREXATE [Concomitant]
     Active Substance: METHOTREXATE
     Route: 013
  80. METHOTREXATE [Concomitant]
     Active Substance: METHOTREXATE
     Route: 048
  81. METHOTREXATE [Concomitant]
     Active Substance: METHOTREXATE
     Route: 013
  82. METHOTREXATE [Concomitant]
     Active Substance: METHOTREXATE
  83. METHOTREXATE [Concomitant]
     Active Substance: METHOTREXATE
  84. METHOTREXATE [Concomitant]
     Active Substance: METHOTREXATE
     Route: 048
  85. METHOTREXATE [Concomitant]
     Active Substance: METHOTREXATE
  86. METHOTREXATE [Concomitant]
     Active Substance: METHOTREXATE
     Route: 013
  87. METHOTREXATE [Concomitant]
     Active Substance: METHOTREXATE
     Route: 048
  88. METHOTREXATE [Concomitant]
     Active Substance: METHOTREXATE
     Route: 048
  89. METHOTREXATE [Concomitant]
     Active Substance: METHOTREXATE
     Route: 058
  90. METHOTREXATE [Concomitant]
     Active Substance: METHOTREXATE
     Route: 058
  91. METHOTREXATE [Concomitant]
     Active Substance: METHOTREXATE
     Route: 048
  92. METHOTREXATE [Concomitant]
     Active Substance: METHOTREXATE
     Route: 048
  93. METHOTREXATE [Concomitant]
     Active Substance: METHOTREXATE
  94. METHOTREXATE [Concomitant]
     Active Substance: METHOTREXATE
  95. METHOTREXATE [Concomitant]
     Active Substance: METHOTREXATE
  96. METHOTREXATE [Concomitant]
     Active Substance: METHOTREXATE
     Route: 048
  97. METHOTREXATE [Concomitant]
     Active Substance: METHOTREXATE
     Route: 013
  98. METHOTREXATE [Concomitant]
     Active Substance: METHOTREXATE
     Route: 058
  99. METHOTREXATE [Concomitant]
     Active Substance: METHOTREXATE
     Route: 048
  100. METHOTREXATE [Concomitant]
     Active Substance: METHOTREXATE
     Route: 048
  101. METHOTREXATE [Concomitant]
     Active Substance: METHOTREXATE
  102. METHOTREXATE [Concomitant]
     Active Substance: METHOTREXATE
  103. METHOTREXATE [Concomitant]
     Active Substance: METHOTREXATE
  104. METHOTREXATE [Concomitant]
     Active Substance: METHOTREXATE
     Route: 042
  105. METHOTREXATE [Concomitant]
     Active Substance: METHOTREXATE
     Route: 048
  106. METHOTREXATE [Concomitant]
     Active Substance: METHOTREXATE
     Route: 048
  107. METHOTREXATE [Concomitant]
     Active Substance: METHOTREXATE
  108. METHOTREXATE [Concomitant]
     Active Substance: METHOTREXATE
     Route: 058
  109. GOLIMUMAB [Concomitant]
     Active Substance: GOLIMUMAB
     Indication: Rheumatoid arthritis
  110. GOLIMUMAB [Concomitant]
     Active Substance: GOLIMUMAB
     Route: 058
  111. GOLIMUMAB [Concomitant]
     Active Substance: GOLIMUMAB
  112. INFLIXIMAB [Concomitant]
     Active Substance: INFLIXIMAB
     Indication: Rheumatoid arthritis
     Dosage: UNK
     Route: 041
  113. INFLIXIMAB [Concomitant]
     Active Substance: INFLIXIMAB
     Indication: Crohn^s disease
     Dosage: UNK
     Route: 042
  114. MINOCYCLINE HYDROCHLORIDE [Concomitant]
     Active Substance: MINOCYCLINE HYDROCHLORIDE
     Indication: Product used for unknown indication
  115. OTEZLA [Concomitant]
     Active Substance: APREMILAST
     Indication: Product used for unknown indication
     Dosage: 3 MILLIGRAM, BID
     Route: 048
  116. OTEZLA [Concomitant]
     Active Substance: APREMILAST
     Dosage: UNK
  117. OTEZLA [Concomitant]
     Active Substance: APREMILAST
     Route: 048
  118. OTEZLA [Concomitant]
     Active Substance: APREMILAST
     Route: 048
  119. OTEZLA [Concomitant]
     Active Substance: APREMILAST
     Route: 048
  120. OTEZLA [Concomitant]
     Active Substance: APREMILAST
     Route: 048
  121. OTEZLA [Concomitant]
     Active Substance: APREMILAST
     Route: 048
  122. OTEZLA [Concomitant]
     Active Substance: APREMILAST
  123. OTEZLA [Concomitant]
     Active Substance: APREMILAST
  124. RITUXAN [Concomitant]
     Active Substance: RITUXIMAB
     Indication: Product used for unknown indication
     Dosage: UNK
     Route: 042
  125. RITUXAN [Concomitant]
     Active Substance: RITUXIMAB
     Dosage: UNK
     Route: 041
  126. USTEKINUMAB [Concomitant]
     Active Substance: USTEKINUMAB
     Indication: Crohn^s disease
     Route: 058
  127. USTEKINUMAB [Concomitant]
     Active Substance: USTEKINUMAB
     Dosage: UNK
     Route: 058
  128. USTEKINUMAB [Concomitant]
     Active Substance: USTEKINUMAB
     Dosage: 1 DOSAGE FORM
     Route: 048
  129. USTEKINUMAB [Concomitant]
     Active Substance: USTEKINUMAB
  130. REMICADE [Concomitant]
     Active Substance: INFLIXIMAB
     Indication: Rheumatoid arthritis
     Dosage: 400 MILLIGRAM
     Route: 042
  131. REMICADE [Concomitant]
     Active Substance: INFLIXIMAB
     Indication: Ankylosing spondylitis
     Dosage: 5 MILLIGRAM/KILOGRAM
     Route: 042
  132. REMICADE [Concomitant]
     Active Substance: INFLIXIMAB
     Indication: Crohn^s disease
     Dosage: POWDER FOR SOLUTION INTRAVENOUS
     Route: 042
  133. REMICADE [Concomitant]
     Active Substance: INFLIXIMAB
     Dosage: 500 MILLIGRAM
     Route: 042
  134. REMICADE [Concomitant]
     Active Substance: INFLIXIMAB
     Dosage: POWDER FOR SOLUTION FOR INFUSION
     Route: 042
  135. REMICADE [Concomitant]
     Active Substance: INFLIXIMAB
     Dosage: POWDER FOR SOLUTION INTRAVENOUS
  136. SIMPONI [Concomitant]
     Active Substance: GOLIMUMAB
     Indication: Rheumatoid arthritis
     Route: 058
  137. SIMPONI [Concomitant]
     Active Substance: GOLIMUMAB
     Route: 058
  138. SIMPONI [Concomitant]
     Active Substance: GOLIMUMAB
     Route: 042
  139. SIMPONI [Concomitant]
     Active Substance: GOLIMUMAB
  140. SIMPONI [Concomitant]
     Active Substance: GOLIMUMAB
     Route: 058
  141. SIMPONI [Concomitant]
     Active Substance: GOLIMUMAB
     Route: 058
  142. SIMPONI [Concomitant]
     Active Substance: GOLIMUMAB
  143. SIMPONI [Concomitant]
     Active Substance: GOLIMUMAB
     Route: 058
  144. SIMPONI [Concomitant]
     Active Substance: GOLIMUMAB
     Route: 058
  145. SIMPONI [Concomitant]
     Active Substance: GOLIMUMAB
     Route: 058
  146. SIMPONI [Concomitant]
     Active Substance: GOLIMUMAB
     Route: 042
  147. SIMPONI [Concomitant]
     Active Substance: GOLIMUMAB
     Route: 058
  148. SIMPONI [Concomitant]
     Active Substance: GOLIMUMAB
  149. SIRUKUMAB [Concomitant]
     Active Substance: SIRUKUMAB
     Indication: Product used for unknown indication
     Dosage: UNK
     Route: 058
  150. SIRUKUMAB [Concomitant]
     Active Substance: SIRUKUMAB
  151. STELARA [Concomitant]
     Active Substance: USTEKINUMAB
     Indication: Product used for unknown indication
     Route: 058
  152. STELARA [Concomitant]
     Active Substance: USTEKINUMAB
  153. SULFASALAZINE [Concomitant]
     Active Substance: SULFASALAZINE
     Indication: Rheumatoid arthritis
  154. SULFASALAZINE [Concomitant]
     Active Substance: SULFASALAZINE
  155. SULFASALAZINE [Concomitant]
     Active Substance: SULFASALAZINE
     Route: 048
  156. SULFASALAZINE [Concomitant]
     Active Substance: SULFASALAZINE
     Route: 058
  157. SULFASALAZINE [Concomitant]
     Active Substance: SULFASALAZINE
     Dosage: 1 DOSAGE FORM
  158. SULFASALAZINE [Concomitant]
     Active Substance: SULFASALAZINE
     Route: 048
  159. SULFASALAZINE [Concomitant]
     Active Substance: SULFASALAZINE
  160. SULFASALAZINE [Concomitant]
     Active Substance: SULFASALAZINE
  161. SULFASALAZINE [Concomitant]
     Active Substance: SULFASALAZINE
  162. SULFASALAZINE [Concomitant]
     Active Substance: SULFASALAZINE
     Route: 058
  163. SULFASALAZINE [Concomitant]
     Active Substance: SULFASALAZINE
  164. SULFASALAZINE [Concomitant]
     Active Substance: SULFASALAZINE
     Route: 048
  165. SULFASALAZINE [Concomitant]
     Active Substance: SULFASALAZINE
     Route: 048
  166. SULFASALAZINE [Concomitant]
     Active Substance: SULFASALAZINE
     Route: 048
  167. SULFASALAZINE [Concomitant]
     Active Substance: SULFASALAZINE
  168. SULFASALAZINE [Concomitant]
     Active Substance: SULFASALAZINE
     Route: 048
  169. SULFASALAZINE [Concomitant]
     Active Substance: SULFASALAZINE
     Route: 048
  170. SULFASALAZINE [Concomitant]
     Active Substance: SULFASALAZINE
     Route: 048
  171. SULFASALAZINE [Concomitant]
     Active Substance: SULFASALAZINE
     Route: 048
  172. SULFASALAZINE [Concomitant]
     Active Substance: SULFASALAZINE
     Route: 058
  173. SULFASALAZINE [Concomitant]
     Active Substance: SULFASALAZINE
     Route: 048
  174. SULFASALAZINE [Concomitant]
     Active Substance: SULFASALAZINE
  175. SULFASALAZINE [Concomitant]
     Active Substance: SULFASALAZINE
  176. SULFASALAZINE [Concomitant]
     Active Substance: SULFASALAZINE
  177. SULFASALAZINE [Concomitant]
     Active Substance: SULFASALAZINE
     Route: 048
  178. SULFASALAZINE [Concomitant]
     Active Substance: SULFASALAZINE
     Route: 048
  179. SULFASALAZINE [Concomitant]
     Active Substance: SULFASALAZINE
  180. SULFASALAZINE [Concomitant]
     Active Substance: SULFASALAZINE
     Route: 048
  181. SULFASALAZINE [Concomitant]
     Active Substance: SULFASALAZINE
     Route: 048
  182. SULFASALAZINE [Concomitant]
     Active Substance: SULFASALAZINE
  183. SULFASALAZINE [Concomitant]
     Active Substance: SULFASALAZINE
     Route: 048
  184. SULFASALAZINE [Concomitant]
     Active Substance: SULFASALAZINE
  185. SULFASALAZINE [Concomitant]
     Active Substance: SULFASALAZINE
     Route: 048
  186. SULFASALAZINE [Concomitant]
     Active Substance: SULFASALAZINE
     Route: 048
  187. SULFASALAZINE [Concomitant]
     Active Substance: SULFASALAZINE
     Route: 048
  188. SULFASALAZINE [Concomitant]
     Active Substance: SULFASALAZINE
  189. SULFASALAZINE [Concomitant]
     Active Substance: SULFASALAZINE
  190. XELJANZ [Concomitant]
     Active Substance: TOFACITINIB CITRATE
     Indication: Rheumatoid arthritis
     Dosage: 5 MG, 2 EVERI 1 DAYS
     Route: 048
  191. XELJANZ [Concomitant]
     Active Substance: TOFACITINIB CITRATE
     Dosage: 5 MG, 2 EVERI 1 DAYS
  192. XELJANZ [Concomitant]
     Active Substance: TOFACITINIB CITRATE
     Dosage: 5 MG, 2 EVERI 1 DAYS
  193. XELJANZ [Concomitant]
     Active Substance: TOFACITINIB CITRATE
     Dosage: 5 MG, 2 EVERI 1 DAYS
  194. XELJANZ [Concomitant]
     Active Substance: TOFACITINIB CITRATE
     Dosage: 5 MG, 2 EVERI 1 DAYS
     Route: 048
  195. XELJANZ [Concomitant]
     Active Substance: TOFACITINIB CITRATE
     Dosage: 5 MG, 2 EVERI 1 DAYS
  196. XELJANZ [Concomitant]
     Active Substance: TOFACITINIB CITRATE
     Dosage: 5 MG, 2 EVERI 1 DAYS
     Route: 048
  197. XELJANZ [Concomitant]
     Active Substance: TOFACITINIB CITRATE
     Route: 048
  198. XELJANZ [Concomitant]
     Active Substance: TOFACITINIB CITRATE
     Route: 048
  199. XELJANZ [Concomitant]
     Active Substance: TOFACITINIB CITRATE
     Route: 048
  200. XELJANZ [Concomitant]
     Active Substance: TOFACITINIB CITRATE
     Route: 048
  201. XELJANZ [Concomitant]
     Active Substance: TOFACITINIB CITRATE
  202. XELJANZ [Concomitant]
     Active Substance: TOFACITINIB CITRATE
  203. MINOCYCLINE [Concomitant]
     Active Substance: MINOCYCLINE HYDROCHLORIDE
     Indication: Product used for unknown indication
  204. MINOCYCLINE [Concomitant]
     Active Substance: MINOCYCLINE HYDROCHLORIDE
     Dosage: UNK
  205. COSENTYX [Concomitant]
     Active Substance: SECUKINUMAB
     Indication: Product used for unknown indication
  206. RITUXIMAB [Concomitant]
     Active Substance: RITUXIMAB
     Indication: Product used for unknown indication
     Dosage: UNK
     Route: 042
  207. RITUXIMAB [Concomitant]
     Active Substance: RITUXIMAB
     Dosage: UNK
     Route: 041
  208. RITUXIMAB [Concomitant]
     Active Substance: RITUXIMAB
     Route: 042
  209. RITUXIMAB [Concomitant]
     Active Substance: RITUXIMAB
     Route: 041
  210. HYDROXYCHLOROQUINE SULFATE [Concomitant]
     Active Substance: HYDROXYCHLOROQUINE SULFATE
     Indication: Product used for unknown indication
  211. HYDROXYCHLOROQUINE SULFATE [Concomitant]
     Active Substance: HYDROXYCHLOROQUINE SULFATE
  212. HYDROXYCHLOROQUINE SULFATE [Concomitant]
     Active Substance: HYDROXYCHLOROQUINE SULFATE
  213. HYDROXYCHLOROQUINE SULFATE [Concomitant]
     Active Substance: HYDROXYCHLOROQUINE SULFATE
     Route: 048
  214. HYDROXYCHLOROQUINE SULFATE [Concomitant]
     Active Substance: HYDROXYCHLOROQUINE SULFATE
     Indication: Rheumatoid arthritis
     Dosage: 400 MILLIGRAM, QD
     Route: 048
  215. HYDROXYCHLOROQUINE SULFATE [Concomitant]
     Active Substance: HYDROXYCHLOROQUINE SULFATE
     Indication: Systemic lupus erythematosus
  216. HYDROXYCHLOROQUINE SULFATE [Concomitant]
     Active Substance: HYDROXYCHLOROQUINE SULFATE
  217. HYDROXYCHLOROQUINE SULFATE [Concomitant]
     Active Substance: HYDROXYCHLOROQUINE SULFATE
  218. HYDROXYCHLOROQUINE SULFATE [Concomitant]
     Active Substance: HYDROXYCHLOROQUINE SULFATE
     Route: 048
  219. HYDROXYCHLOROQUINE SULFATE [Concomitant]
     Active Substance: HYDROXYCHLOROQUINE SULFATE
     Route: 048
  220. HYDROXYCHLOROQUINE SULFATE [Concomitant]
     Active Substance: HYDROXYCHLOROQUINE SULFATE
  221. HYDROXYCHLOROQUINE SULFATE [Concomitant]
     Active Substance: HYDROXYCHLOROQUINE SULFATE
  222. HYDROXYCHLOROQUINE SULFATE [Concomitant]
     Active Substance: HYDROXYCHLOROQUINE SULFATE
     Route: 058
  223. HYDROXYCHLOROQUINE SULFATE [Concomitant]
     Active Substance: HYDROXYCHLOROQUINE SULFATE
     Route: 048
  224. HYDROXYCHLOROQUINE SULFATE [Concomitant]
     Active Substance: HYDROXYCHLOROQUINE SULFATE
     Route: 048
  225. MORPHINE SULFATE [Concomitant]
     Active Substance: MORPHINE SULFATE
     Indication: Product used for unknown indication
  226. LEFLUNOMIDE [Concomitant]
     Active Substance: LEFLUNOMIDE
     Indication: Rheumatoid arthritis
     Dosage: UNK
     Route: 048
  227. LEFLUNOMIDE [Concomitant]
     Active Substance: LEFLUNOMIDE
  228. LEFLUNOMIDE [Concomitant]
     Active Substance: LEFLUNOMIDE
  229. LEFLUNOMIDE [Concomitant]
     Active Substance: LEFLUNOMIDE
  230. LEFLUNOMIDE [Concomitant]
     Active Substance: LEFLUNOMIDE
  231. DOXYCYCLINE [Concomitant]
     Active Substance: DOXYCYCLINE\DOXYCYCLINE HYCLATE
     Indication: Product used for unknown indication
  232. LEFLUNOMIDE [Concomitant]
     Active Substance: LEFLUNOMIDE
     Indication: Rheumatoid arthritis
  233. LEFLUNOMIDE [Concomitant]
     Active Substance: LEFLUNOMIDE
     Indication: Condition aggravated
  234. LEFLUNOMIDE [Concomitant]
     Active Substance: LEFLUNOMIDE
  235. LEFLUNOMIDE [Concomitant]
     Active Substance: LEFLUNOMIDE
  236. LEFLUNOMIDE [Concomitant]
     Active Substance: LEFLUNOMIDE
  237. PREDNISONE [Concomitant]
     Active Substance: PREDNISONE
     Indication: Rheumatoid arthritis
     Dosage: 40 MILLIGRAM
     Route: 048
  238. PREDNISONE [Concomitant]
     Active Substance: PREDNISONE
     Indication: Condition aggravated
  239. PREDNISONE [Concomitant]
     Active Substance: PREDNISONE
     Indication: Disease progression
  240. ASACOL [Concomitant]
     Active Substance: MESALAMINE
     Indication: Crohn^s disease
  241. ASACOL [Concomitant]
     Active Substance: MESALAMINE
  242. CETIRIZINE [Concomitant]
     Active Substance: CETIRIZINE HYDROCHLORIDE
     Indication: Rheumatoid arthritis
     Dosage: UNK
  243. CETIRIZINE [Concomitant]
     Active Substance: CETIRIZINE HYDROCHLORIDE
  244. CETIRIZINE [Concomitant]
     Active Substance: CETIRIZINE HYDROCHLORIDE
  245. CORTISONE ACETATE [Concomitant]
     Active Substance: CORTISONE ACETATE
     Indication: Rheumatoid arthritis
     Dosage: 25 MILLIGRAM
  246. CORTISONE ACETATE [Concomitant]
     Active Substance: CORTISONE ACETATE
     Dosage: 25 MILLIGRAM
     Route: 061
  247. CORTISONE ACETATE [Concomitant]
     Active Substance: CORTISONE ACETATE
  248. CORTISONE ACETATE [Concomitant]
     Active Substance: CORTISONE ACETATE
  249. CORTISONE ACETATE [Concomitant]
     Active Substance: CORTISONE ACETATE
     Route: 061
  250. CORTISONE ACETATE [Concomitant]
     Active Substance: CORTISONE ACETATE
  251. CORTISONE ACETATE [Concomitant]
     Active Substance: CORTISONE ACETATE
     Route: 061
  252. CORTISONE ACETATE [Concomitant]
     Active Substance: CORTISONE ACETATE
     Route: 061
  253. CORTISONE ACETATE [Concomitant]
     Active Substance: CORTISONE ACETATE
     Route: 048
  254. CORTISONE ACETATE [Concomitant]
     Active Substance: CORTISONE ACETATE
     Route: 048
  255. CORTISONE ACETATE [Concomitant]
     Active Substance: CORTISONE ACETATE
  256. CORTISONE ACETATE [Concomitant]
     Active Substance: CORTISONE ACETATE
  257. CORTISONE ACETATE [Concomitant]
     Active Substance: CORTISONE ACETATE
  258. DESOXIMETASONE [Concomitant]
     Active Substance: DESOXIMETASONE
     Indication: Rheumatoid arthritis
     Route: 048
  259. DESOXIMETASONE [Concomitant]
     Active Substance: DESOXIMETASONE
     Route: 058
  260. DESOXIMETASONE [Concomitant]
     Active Substance: DESOXIMETASONE
     Route: 061
  261. DESOXIMETASONE [Concomitant]
     Active Substance: DESOXIMETASONE
     Route: 061
  262. DESOXIMETASONE [Concomitant]
     Active Substance: DESOXIMETASONE
     Route: 048
  263. DESOXIMETASONE [Concomitant]
     Active Substance: DESOXIMETASONE
     Route: 067
  264. DESOXIMETASONE [Concomitant]
     Active Substance: DESOXIMETASONE
     Route: 003
  265. DESOXIMETASONE [Concomitant]
     Active Substance: DESOXIMETASONE
  266. DESOXIMETASONE [Concomitant]
     Active Substance: DESOXIMETASONE
     Route: 067
  267. DESOXIMETASONE [Concomitant]
     Active Substance: DESOXIMETASONE
     Route: 048
  268. DESOXIMETASONE [Concomitant]
     Active Substance: DESOXIMETASONE
     Route: 003
  269. DICLOFENAC [Concomitant]
     Active Substance: DICLOFENAC
     Indication: Product used for unknown indication
     Dosage: UNK
  270. DICLOFENAC [Concomitant]
     Active Substance: DICLOFENAC
  271. DICLOFENAC [Concomitant]
     Active Substance: DICLOFENAC
  272. FOLIC ACID [Concomitant]
     Active Substance: FOLIC ACID
     Indication: Rheumatoid arthritis
     Route: 048
  273. FOLIC ACID [Concomitant]
     Active Substance: FOLIC ACID
  274. FOLIC ACID [Concomitant]
     Active Substance: FOLIC ACID
     Route: 048
  275. FOLIC ACID [Concomitant]
     Active Substance: FOLIC ACID
     Route: 048
  276. FOLIC ACID [Concomitant]
     Active Substance: FOLIC ACID
  277. FOLIC ACID [Concomitant]
     Active Substance: FOLIC ACID
  278. FOLIC ACID [Concomitant]
     Active Substance: FOLIC ACID
  279. FOLIC ACID [Concomitant]
     Active Substance: FOLIC ACID
     Route: 058
  280. FOLIC ACID [Concomitant]
     Active Substance: FOLIC ACID
  281. FOLIC ACID [Concomitant]
     Active Substance: FOLIC ACID
     Route: 048
  282. FOLIC ACID [Concomitant]
     Active Substance: FOLIC ACID
  283. FOLIC ACID [Concomitant]
     Active Substance: FOLIC ACID
     Route: 058
  284. FOLIC ACID [Concomitant]
     Active Substance: FOLIC ACID
  285. FOLIC ACID [Concomitant]
     Active Substance: FOLIC ACID
  286. FOLIC ACID [Concomitant]
     Active Substance: FOLIC ACID
     Route: 048
  287. FOLIC ACID [Concomitant]
     Active Substance: FOLIC ACID
  288. FOLIC ACID [Concomitant]
     Active Substance: FOLIC ACID
  289. FOLIC ACID [Concomitant]
     Active Substance: FOLIC ACID
     Route: 048
  290. FOLIC ACID [Concomitant]
     Active Substance: FOLIC ACID
  291. FOLIC ACID [Concomitant]
     Active Substance: FOLIC ACID
     Route: 048
  292. FOLIC ACID [Concomitant]
     Active Substance: FOLIC ACID
  293. FOSAMAX [Concomitant]
     Active Substance: ALENDRONATE SODIUM
     Indication: Rheumatoid arthritis
     Route: 048
  294. FOSAMAX [Concomitant]
     Active Substance: ALENDRONATE SODIUM
  295. FOSAMAX [Concomitant]
     Active Substance: ALENDRONATE SODIUM
  296. FOSAMAX [Concomitant]
     Active Substance: ALENDRONATE SODIUM
     Route: 058
  297. FOSAMAX [Concomitant]
     Active Substance: ALENDRONATE SODIUM
     Route: 016
  298. FOSAMAX [Concomitant]
     Active Substance: ALENDRONATE SODIUM
  299. FOSAMAX [Concomitant]
     Active Substance: ALENDRONATE SODIUM
     Route: 048
  300. FOSAMAX [Concomitant]
     Active Substance: ALENDRONATE SODIUM
     Route: 058
  301. HYDROXYCHLOROQUINE [Concomitant]
     Active Substance: HYDROXYCHLOROQUINE
     Indication: Rheumatoid arthritis
  302. HYDROXYCHLOROQUINE [Concomitant]
     Active Substance: HYDROXYCHLOROQUINE
     Indication: Systemic lupus erythematosus
     Route: 048
  303. HYDROXYCHLOROQUINE [Concomitant]
     Active Substance: HYDROXYCHLOROQUINE
     Route: 048
  304. HYDROXYCHLOROQUINE [Concomitant]
     Active Substance: HYDROXYCHLOROQUINE
  305. HYDROXYCHLOROQUINE [Concomitant]
     Active Substance: HYDROXYCHLOROQUINE
  306. HYDROXYCHLOROQUINE [Concomitant]
     Active Substance: HYDROXYCHLOROQUINE
     Route: 048
  307. HYDROXYCHLOROQUINE [Concomitant]
     Active Substance: HYDROXYCHLOROQUINE
     Route: 048
  308. HYDROXYCHLOROQUINE [Concomitant]
     Active Substance: HYDROXYCHLOROQUINE
     Route: 005
  309. HYDROXYCHLOROQUINE [Concomitant]
     Active Substance: HYDROXYCHLOROQUINE
     Route: 005
  310. HYDROXYCHLOROQUINE [Concomitant]
     Active Substance: HYDROXYCHLOROQUINE
  311. HYDROXYCHLOROQUINE [Concomitant]
     Active Substance: HYDROXYCHLOROQUINE
  312. HYDROXYCHLOROQUINE [Concomitant]
     Active Substance: HYDROXYCHLOROQUINE
     Route: 048
  313. KEVZARA [Concomitant]
     Active Substance: SARILUMAB
     Indication: Rheumatoid arthritis
  314. PHTHALYLSULFATHIAZOLE [Concomitant]
     Active Substance: PHTHALYLSULFATHIAZOLE
     Indication: Rheumatoid arthritis
  315. PHTHALYLSULFATHIAZOLE [Concomitant]
     Active Substance: PHTHALYLSULFATHIAZOLE
     Route: 048
  316. PHTHALYLSULFATHIAZOLE [Concomitant]
     Active Substance: PHTHALYLSULFATHIAZOLE
     Route: 048
  317. PHTHALYLSULFATHIAZOLE [Concomitant]
     Active Substance: PHTHALYLSULFATHIAZOLE
     Route: 048
  318. PHTHALYLSULFATHIAZOLE [Concomitant]
     Active Substance: PHTHALYLSULFATHIAZOLE
  319. PHTHALYLSULFATHIAZOLE [Concomitant]
     Active Substance: PHTHALYLSULFATHIAZOLE
     Route: 016
  320. PHTHALYLSULFATHIAZOLE [Concomitant]
     Active Substance: PHTHALYLSULFATHIAZOLE
     Route: 016
  321. PHTHALYLSULFATHIAZOLE [Concomitant]
     Active Substance: PHTHALYLSULFATHIAZOLE
  322. PREDNISONE [Concomitant]
     Active Substance: PREDNISONE
     Indication: Arthralgia
  323. PREDNISONE [Concomitant]
     Active Substance: PREDNISONE
     Indication: Rheumatoid arthritis
     Route: 048
  324. PREDNISONE [Concomitant]
     Active Substance: PREDNISONE
     Indication: Condition aggravated
  325. PREDNISONE [Concomitant]
     Active Substance: PREDNISONE
     Indication: Disease progression
  326. PREDNISONE [Concomitant]
     Active Substance: PREDNISONE
     Route: 048
  327. PREDNISONE [Concomitant]
     Active Substance: PREDNISONE
  328. PREDNISONE [Concomitant]
     Active Substance: PREDNISONE
     Route: 061
  329. PREDNISONE [Concomitant]
     Active Substance: PREDNISONE
     Route: 048
  330. PREDNISONE [Concomitant]
     Active Substance: PREDNISONE
     Route: 048
  331. PREDNISONE [Concomitant]
     Active Substance: PREDNISONE
  332. PREDNISONE [Concomitant]
     Active Substance: PREDNISONE
  333. PREDNISONE [Concomitant]
     Active Substance: PREDNISONE
     Route: 042
  334. PREDNISONE [Concomitant]
     Active Substance: PREDNISONE
     Route: 016
  335. PREDNISONE [Concomitant]
     Active Substance: PREDNISONE
  336. PSEUDOEPHEDRINE HYDROCHLORIDE [Concomitant]
     Active Substance: PSEUDOEPHEDRINE HYDROCHLORIDE
     Indication: Rheumatoid arthritis
  337. PSEUDOEPHEDRINE HYDROCHLORIDE [Concomitant]
     Active Substance: PSEUDOEPHEDRINE HYDROCHLORIDE
     Indication: Arthralgia
     Route: 048
  338. PSEUDOEPHEDRINE HYDROCHLORIDE [Concomitant]
     Active Substance: PSEUDOEPHEDRINE HYDROCHLORIDE
     Route: 048
  339. PSEUDOEPHEDRINE HYDROCHLORIDE [Concomitant]
     Active Substance: PSEUDOEPHEDRINE HYDROCHLORIDE
  340. SECUKINUMAB [Concomitant]
     Active Substance: SECUKINUMAB
     Indication: Product used for unknown indication
  341. TOCILIZUMAB [Concomitant]
     Active Substance: TOCILIZUMAB
     Indication: Rheumatoid arthritis
  342. TOCILIZUMAB [Concomitant]
     Active Substance: TOCILIZUMAB
     Route: 058
  343. TOCILIZUMAB [Concomitant]
     Active Substance: TOCILIZUMAB
     Route: 016
  344. TOCILIZUMAB [Concomitant]
     Active Substance: TOCILIZUMAB
  345. TOCILIZUMAB [Concomitant]
     Active Substance: TOCILIZUMAB
  346. TOCILIZUMAB [Concomitant]
     Active Substance: TOCILIZUMAB
     Route: 042
  347. TOCILIZUMAB [Concomitant]
     Active Substance: TOCILIZUMAB
     Route: 042
  348. TOCILIZUMAB [Concomitant]
     Active Substance: TOCILIZUMAB
     Route: 061
  349. INFLIXIMAB [Concomitant]
     Active Substance: INFLIXIMAB
     Indication: Crohn^s disease
     Dosage: UNK
     Route: 042
  350. INFLIXIMAB [Concomitant]
     Active Substance: INFLIXIMAB
     Indication: Rheumatoid arthritis
  351. LEFLUNOMIDE [Concomitant]
     Active Substance: LEFLUNOMIDE
     Indication: Rheumatoid arthritis
     Dosage: 20 MILLIGRAM, QD
  352. LEFLUNOMIDE [Concomitant]
     Active Substance: LEFLUNOMIDE
     Dosage: 10 MILLIGRAM, QD
  353. LEFLUNOMIDE [Concomitant]
     Active Substance: LEFLUNOMIDE
     Dosage: UNK
  354. LEFLUNOMIDE [Concomitant]
     Active Substance: LEFLUNOMIDE
     Dosage: 20 MILLIGRAM
  355. LEFLUNOMIDE [Concomitant]
     Active Substance: LEFLUNOMIDE
     Route: 048
  356. LEFLUNOMIDE [Concomitant]
     Active Substance: LEFLUNOMIDE
     Dosage: 20 MILLIGRAM, QD
  357. DILAUDID [Concomitant]
     Active Substance: HYDROMORPHONE HYDROCHLORIDE
     Indication: Pain
  358. WELLBUTRIN [Concomitant]
     Active Substance: BUPROPION HYDROCHLORIDE
     Indication: Product used for unknown indication
  359. WELLBUTRIN [Concomitant]
     Active Substance: BUPROPION HYDROCHLORIDE
  360. HYDROMORPHONE HCL [Concomitant]
     Active Substance: HYDROMORPHONE HYDROCHLORIDE
     Indication: Product used for unknown indication
     Dosage: UNK
  361. HYDROMORPHONE HCL [Concomitant]
     Active Substance: HYDROMORPHONE HYDROCHLORIDE
     Route: 030
  362. BUPROPION HYDROCHLORIDE [Concomitant]
     Active Substance: BUPROPION HYDROCHLORIDE
     Indication: Product used for unknown indication
  363. BUPROPION [Concomitant]
     Active Substance: BUPROPION
     Indication: Product used for unknown indication
  364. SULFASALAZINE [Concomitant]
     Active Substance: SULFASALAZINE
     Indication: Product used for unknown indication
  365. ALENDRONATE SODIUM [Concomitant]
     Active Substance: ALENDRONATE SODIUM
     Indication: Rheumatoid arthritis
  366. ALENDRONATE SODIUM [Concomitant]
     Active Substance: ALENDRONATE SODIUM
  367. ALENDRONATE SODIUM [Concomitant]
     Active Substance: ALENDRONATE SODIUM
     Route: 048
  368. ALENDRONATE SODIUM [Concomitant]
     Active Substance: ALENDRONATE SODIUM
     Route: 048
  369. ALENDRONIC ACID [Concomitant]
     Active Substance: ALENDRONIC ACID
     Indication: Rheumatoid arthritis
     Route: 048
  370. ALENDRONIC ACID [Concomitant]
     Active Substance: ALENDRONIC ACID
  371. ALENDRONIC ACID [Concomitant]
     Active Substance: ALENDRONIC ACID
     Route: 016
  372. ARAVA [Concomitant]
     Active Substance: LEFLUNOMIDE
     Indication: Rheumatoid arthritis
     Dosage: UNK
     Route: 048
  373. ARAVA [Concomitant]
     Active Substance: LEFLUNOMIDE
  374. ARAVA [Concomitant]
     Active Substance: LEFLUNOMIDE
  375. ARAVA [Concomitant]
     Active Substance: LEFLUNOMIDE
     Route: 048
  376. ARAVA [Concomitant]
     Active Substance: LEFLUNOMIDE
  377. CALCIUM [Concomitant]
     Active Substance: CALCIUM
     Indication: Product used for unknown indication
  378. CALCIUM CARBONATE [Concomitant]
     Active Substance: CALCIUM CARBONATE
     Indication: Product used for unknown indication
  379. CALCIUM GLUBIONATE [Concomitant]
     Active Substance: CALCIUM GLUBIONATE
     Indication: Product used for unknown indication
  380. CALCIUM GLUBIONATE [Concomitant]
     Active Substance: CALCIUM GLUBIONATE
  381. CALCIUM GLUBIONATE [Concomitant]
     Active Substance: CALCIUM GLUBIONATE
     Route: 016
  382. CETIRIZINE HYDROCHLORIDE [Concomitant]
     Active Substance: CETIRIZINE HYDROCHLORIDE
     Indication: Rheumatoid arthritis
     Dosage: UNK
  383. CETIRIZINE HYDROCHLORIDE [Concomitant]
     Active Substance: CETIRIZINE HYDROCHLORIDE
     Dosage: UNK
  384. CETIRIZINE HYDROCHLORIDE [Concomitant]
     Active Substance: CETIRIZINE HYDROCHLORIDE
     Route: 048
  385. CETIRIZINE HYDROCHLORIDE [Concomitant]
     Active Substance: CETIRIZINE HYDROCHLORIDE
     Route: 048
  386. CETIRIZINE HYDROCHLORIDE [Concomitant]
     Active Substance: CETIRIZINE HYDROCHLORIDE
  387. CETIRIZINE HYDROCHLORIDE [Concomitant]
     Active Substance: CETIRIZINE HYDROCHLORIDE
  388. CETIRIZINE HYDROCHLORIDE [Concomitant]
     Active Substance: CETIRIZINE HYDROCHLORIDE
  389. CETIRIZINE HYDROCHLORIDE [Concomitant]
     Active Substance: CETIRIZINE HYDROCHLORIDE
     Route: 048
  390. CETIRIZINE HYDROCHLORIDE [Concomitant]
     Active Substance: CETIRIZINE HYDROCHLORIDE
     Route: 048
  391. DICLOFENAC POTASSIUM [Concomitant]
     Active Substance: DICLOFENAC POTASSIUM
     Indication: Product used for unknown indication
  392. DICLOFENAC SODIUM [Concomitant]
     Active Substance: DICLOFENAC\DICLOFENAC SODIUM
     Indication: Rheumatoid arthritis
  393. DICLOFENAC SODIUM [Concomitant]
     Active Substance: DICLOFENAC\DICLOFENAC SODIUM
     Indication: Osteoarthritis
  394. DICLOFENAC SODIUM [Concomitant]
     Active Substance: DICLOFENAC\DICLOFENAC SODIUM
  395. HYDROCORTISONE ACETATE [Concomitant]
     Active Substance: HYDROCORTISONE ACETATE
     Indication: Rheumatoid arthritis
  396. PANTOPRAZOLE [Concomitant]
     Active Substance: PANTOPRAZOLE
     Indication: Dyspepsia
  397. QUETIAPINE FUMARATE [Concomitant]
     Active Substance: QUETIAPINE FUMARATE
     Indication: Product used for unknown indication
  398. RAMIPRIL [Concomitant]
     Active Substance: RAMIPRIL
     Indication: Product used for unknown indication
  399. VITAMIN C [Concomitant]
     Active Substance: ASCORBIC ACID
     Indication: Product used for unknown indication
  400. VITAMIN C [Concomitant]
     Active Substance: ASCORBIC ACID
  401. VITAMIN D3 [Concomitant]
     Active Substance: CHOLECALCIFEROL
     Indication: Product used for unknown indication
  402. VITAMIN D3 [Concomitant]
     Active Substance: CHOLECALCIFEROL
  403. ACETAMINOPHEN [Concomitant]
     Active Substance: ACETAMINOPHEN
     Indication: Product used for unknown indication
  404. ACETAMINOPHEN [Concomitant]
     Active Substance: ACETAMINOPHEN
     Route: 016
  405. ACETAMINOPHEN [Concomitant]
     Active Substance: ACETAMINOPHEN
  406. CAFFEINE CITRATE [Concomitant]
     Active Substance: CAFFEINE CITRATE
     Indication: Product used for unknown indication
  407. CODEINE [Concomitant]
     Active Substance: CODEINE
     Indication: Product used for unknown indication
  408. DIPHENHYDRAMINE HYDROCHLORIDE [Concomitant]
     Active Substance: DIPHENHYDRAMINE HYDROCHLORIDE
     Indication: Product used for unknown indication
  409. IBUPROFEN [Concomitant]
     Active Substance: IBUPROFEN
     Indication: Product used for unknown indication
  410. LISINOPRIL [Concomitant]
     Active Substance: LISINOPRIL
     Indication: Product used for unknown indication
  411. METHYLPREDNISOLONE SODIUM SUCCINATE [Concomitant]
     Active Substance: METHYLPREDNISOLONE SODIUM SUCCINATE
     Indication: Product used for unknown indication
  412. PSEUDOEPHEDRINE [Concomitant]
     Active Substance: PSEUDOEPHEDRINE
     Indication: Rheumatoid arthritis
  413. CETIRIZINE HYDROCHLORIDE\PSEUDOEPHEDRINE HYDROCHLORIDE [Concomitant]
     Active Substance: CETIRIZINE HYDROCHLORIDE\PSEUDOEPHEDRINE HYDROCHLORIDE
     Indication: Rheumatoid arthritis
     Dosage: TABLET (EXTENDED RELEASE)
  414. CETIRIZINE HYDROCHLORIDE\PSEUDOEPHEDRINE HYDROCHLORIDE [Concomitant]
     Active Substance: CETIRIZINE HYDROCHLORIDE\PSEUDOEPHEDRINE HYDROCHLORIDE
     Route: 067
  415. CETIRIZINE HYDROCHLORIDE\PSEUDOEPHEDRINE HYDROCHLORIDE [Concomitant]
     Active Substance: CETIRIZINE HYDROCHLORIDE\PSEUDOEPHEDRINE HYDROCHLORIDE
     Route: 067
  416. CETIRIZINE HYDROCHLORIDE\PSEUDOEPHEDRINE HYDROCHLORIDE [Concomitant]
     Active Substance: CETIRIZINE HYDROCHLORIDE\PSEUDOEPHEDRINE HYDROCHLORIDE
     Route: 048
  417. CETIRIZINE HYDROCHLORIDE\PSEUDOEPHEDRINE HYDROCHLORIDE [Concomitant]
     Active Substance: CETIRIZINE HYDROCHLORIDE\PSEUDOEPHEDRINE HYDROCHLORIDE
  418. CETIRIZINE HYDROCHLORIDE\PSEUDOEPHEDRINE HYDROCHLORIDE [Concomitant]
     Active Substance: CETIRIZINE HYDROCHLORIDE\PSEUDOEPHEDRINE HYDROCHLORIDE
  419. PREDNISONE [Concomitant]
     Active Substance: PREDNISONE
     Indication: Rheumatoid arthritis
     Route: 048
  420. PREDNISONE [Concomitant]
     Active Substance: PREDNISONE
  421. PREDNISONE [Concomitant]
     Active Substance: PREDNISONE
  422. CALCIUM GLUCONATE [Concomitant]
     Active Substance: CALCIUM GLUCONATE
     Indication: Product used for unknown indication
  423. CETIRIZINE HYDROCHLORIDE AND PSEUDOEPHEDRINE HYDROCHLORIDE [Concomitant]
     Active Substance: CETIRIZINE HYDROCHLORIDE\PSEUDOEPHEDRINE HYDROCHLORIDE
     Indication: Product used for unknown indication
  424. LEVOCETIRIZINE [Concomitant]
     Active Substance: LEVOCETIRIZINE
     Indication: Product used for unknown indication
  425. HYALURONIDASE (HUMAN RECOMBINANT)\RITUXIMAB [Concomitant]
     Active Substance: HYALURONIDASE (HUMAN RECOMBINANT)\RITUXIMAB
     Indication: Rheumatoid arthritis
     Route: 058
  426. HYALURONIDASE (HUMAN RECOMBINANT)\RITUXIMAB [Concomitant]
     Active Substance: HYALURONIDASE (HUMAN RECOMBINANT)\RITUXIMAB
     Route: 042
  427. HYALURONIDASE (HUMAN RECOMBINANT)\RITUXIMAB [Concomitant]
     Active Substance: HYALURONIDASE (HUMAN RECOMBINANT)\RITUXIMAB
     Route: 042
  428. HYALURONIDASE (HUMAN RECOMBINANT)\RITUXIMAB [Concomitant]
     Active Substance: HYALURONIDASE (HUMAN RECOMBINANT)\RITUXIMAB
  429. TOPICORT [Concomitant]
     Active Substance: DESOXIMETASONE
     Indication: Rheumatoid arthritis
  430. TOFACITINIB CITRATE [Concomitant]
     Active Substance: TOFACITINIB CITRATE
     Indication: Product used for unknown indication
  431. TOFACITINIB CITRATE [Concomitant]
     Active Substance: TOFACITINIB CITRATE
     Route: 048
  432. ERGOCALCIFEROL [Concomitant]
     Active Substance: ERGOCALCIFEROL
     Indication: Product used for unknown indication
  433. GLUCOSAMINE [Concomitant]
     Active Substance: GLUCOSAMINE
     Indication: Product used for unknown indication
  434. HYDROCORTISONE [Concomitant]
     Active Substance: HYDROCORTISONE\HYDROCORTISONE ACETATE
     Indication: Rheumatoid arthritis
     Route: 003
  435. HYDROCORTISONE [Concomitant]
     Active Substance: HYDROCORTISONE\HYDROCORTISONE ACETATE
     Route: 048
  436. HYDROCORTISONE [Concomitant]
     Active Substance: HYDROCORTISONE\HYDROCORTISONE ACETATE
     Route: 048
  437. HYDROCORTISONE [Concomitant]
     Active Substance: HYDROCORTISONE\HYDROCORTISONE ACETATE
     Route: 058
  438. HYDROCORTISONE [Concomitant]
     Active Substance: HYDROCORTISONE\HYDROCORTISONE ACETATE
     Route: 061
  439. HYDROCORTISONE [Concomitant]
     Active Substance: HYDROCORTISONE\HYDROCORTISONE ACETATE
  440. HYDROCORTISONE [Concomitant]
     Active Substance: HYDROCORTISONE\HYDROCORTISONE ACETATE
  441. ISOPROPYL ALCOHOL [Concomitant]
     Active Substance: ISOPROPYL ALCOHOL
     Indication: Product used for unknown indication
     Route: 061
  442. LANSOPRAZOLE [Concomitant]
     Active Substance: LANSOPRAZOLE
     Indication: Product used for unknown indication
  443. LORAZEPAM [Concomitant]
     Active Substance: LORAZEPAM
     Indication: Product used for unknown indication
  444. OXYCODONE HYDROCHLORIDE [Concomitant]
     Active Substance: OXYCODONE HYDROCHLORIDE
     Indication: Product used for unknown indication
  445. OXYCODONE TEREPHTHALATE [Concomitant]
     Active Substance: OXYCODONE TEREPHTHALATE
     Indication: Product used for unknown indication
  446. DIETARY SUPPLEMENT [Concomitant]
     Active Substance: DIETARY SUPPLEMENT
     Indication: Product used for unknown indication
  447. CETIRIZINE HYDROCHLORIDE [Concomitant]
     Active Substance: CETIRIZINE HYDROCHLORIDE
     Indication: Rheumatoid arthritis
     Route: 048
  448. HYDROXYCHLOROQUINE DIPHOSPHATE [Concomitant]
     Active Substance: HYDROXYCHLOROQUINE DIPHOSPHATE
     Indication: Product used for unknown indication
     Route: 048
  449. SOLU-MEDROL [Concomitant]
     Active Substance: METHYLPREDNISOLONE SODIUM SUCCINATE
     Indication: Product used for unknown indication
  450. STELARA [Concomitant]
     Active Substance: USTEKINUMAB
     Indication: Rheumatoid arthritis
     Route: 058
  451. SULFATHIAZOLE [Concomitant]
     Active Substance: SULFATHIAZOLE
     Indication: Product used for unknown indication
  452. TOPICORT [Concomitant]
     Active Substance: DESOXIMETASONE
     Indication: Product used for unknown indication
  453. TOPICORT [Concomitant]
     Active Substance: DESOXIMETASONE
     Route: 058
  454. TYLENOL [Concomitant]
     Active Substance: ACETAMINOPHEN
     Indication: Product used for unknown indication
  455. TYLENOL WITH CODEINE [Concomitant]
     Active Substance: ACETAMINOPHEN\CODEINE PHOSPHATE
     Indication: Product used for unknown indication
  456. ACETAMINOPHEN AND CODEINE [Concomitant]
     Active Substance: ACETAMINOPHEN\CODEINE PHOSPHATE
     Indication: Product used for unknown indication
  457. ACETAMINOPHEN\OXYCODONE HYDROCHLORIDE [Concomitant]
     Active Substance: ACETAMINOPHEN\OXYCODONE HYDROCHLORIDE
     Indication: Product used for unknown indication
  458. CERTOLIZUMAB PEGOL [Concomitant]
     Active Substance: CERTOLIZUMAB PEGOL
     Indication: Product used for unknown indication
     Route: 058
  459. CERTOLIZUMAB PEGOL [Concomitant]
     Active Substance: CERTOLIZUMAB PEGOL
  460. CIMZIA [Concomitant]
     Active Substance: CERTOLIZUMAB PEGOL
     Indication: Rheumatoid arthritis
     Route: 058
  461. CIMZIA [Concomitant]
     Active Substance: CERTOLIZUMAB PEGOL
     Indication: Psoriasis
  462. CIMZIA [Concomitant]
     Active Substance: CERTOLIZUMAB PEGOL
     Indication: Crohn^s disease
  463. CIMZIA [Concomitant]
     Active Substance: CERTOLIZUMAB PEGOL
     Route: 058
  464. CIMZIA [Concomitant]
     Active Substance: CERTOLIZUMAB PEGOL
     Route: 058
  465. CIMZIA [Concomitant]
     Active Substance: CERTOLIZUMAB PEGOL
  466. CORTISONE (HYDROCORTISONE) [Concomitant]
     Active Substance: HYDROCORTISONE
     Indication: Product used for unknown indication
     Route: 048
  467. DICLOFENAC SODIUM [Concomitant]
     Active Substance: DICLOFENAC\DICLOFENAC SODIUM
     Indication: Rheumatoid arthritis
     Route: 047
  468. FOLIC ACID [Concomitant]
     Active Substance: FOLIC ACID
     Indication: Product used for unknown indication
  469. PHENYLEPHRINE HYDROCHLORIDE [Concomitant]
     Active Substance: PHENYLEPHRINE HYDROCHLORIDE
     Indication: Rheumatoid arthritis
  470. PHTHALYLSULFATHIAZOLE [Concomitant]
     Active Substance: PHTHALYLSULFATHIAZOLE
     Indication: Product used for unknown indication
  471. PREDNISONE [Concomitant]
     Active Substance: PREDNISONE
     Indication: Rheumatoid arthritis
     Route: 042
  472. PREDNISONE [Concomitant]
     Active Substance: PREDNISONE
     Indication: Disease progression
  473. PREDNISONE [Concomitant]
     Active Substance: PREDNISONE
     Indication: Arthralgia
  474. PSEUDOEPHEDRINE HYDROCHLORIDE\TRIPROLIDINE HYDROCHLORIDE [Concomitant]
     Active Substance: PSEUDOEPHEDRINE HYDROCHLORIDE\TRIPROLIDINE HYDROCHLORIDE
     Indication: Product used for unknown indication
  475. PSEUDOEPHEDRINE HYDROCHLORIDE\TRIPROLIDINE HYDROCHLORIDE [Concomitant]
     Active Substance: PSEUDOEPHEDRINE HYDROCHLORIDE\TRIPROLIDINE HYDROCHLORIDE
  476. REMICADE [Concomitant]
     Active Substance: INFLIXIMAB
     Indication: Rheumatoid arthritis
     Route: 058
  477. REMICADE [Concomitant]
     Active Substance: INFLIXIMAB
     Indication: Crohn^s disease
     Route: 042
  478. REMICADE [Concomitant]
     Active Substance: INFLIXIMAB
     Indication: Ankylosing spondylitis
     Route: 042
  479. REMICADE [Concomitant]
     Active Substance: INFLIXIMAB
     Route: 042
  480. REMICADE [Concomitant]
     Active Substance: INFLIXIMAB
  481. REMICADE [Concomitant]
     Active Substance: INFLIXIMAB
     Route: 042
  482. REMICADE [Concomitant]
     Active Substance: INFLIXIMAB
  483. RITUXIMAB [Concomitant]
     Active Substance: RITUXIMAB
     Indication: Rheumatoid arthritis
     Route: 042
  484. RITUXIMAB [Concomitant]
     Active Substance: RITUXIMAB
  485. RITUXIMAB [Concomitant]
     Active Substance: RITUXIMAB
     Route: 042
  486. RITUXIMAB [Concomitant]
     Active Substance: RITUXIMAB
     Route: 058
  487. RITUXIMAB [Concomitant]
     Active Substance: RITUXIMAB
     Route: 041
  488. RITUXIMAB [Concomitant]
     Active Substance: RITUXIMAB
  489. SULFASALAZINE [Concomitant]
     Active Substance: SULFASALAZINE
     Indication: Rheumatoid arthritis
     Route: 048
  490. SULFASALAZINE [Concomitant]
     Active Substance: SULFASALAZINE
  491. DOCONEXENT\ICOSAPENT [Concomitant]
     Active Substance: DOCONEXENT\ICOSAPENT
     Indication: Product used for unknown indication
  492. CETIRIZINE HYDROCHLORIDE\PSEUDOEPHEDRINE HYDROCHLORIDE [Concomitant]
     Active Substance: CETIRIZINE HYDROCHLORIDE\PSEUDOEPHEDRINE HYDROCHLORIDE
     Indication: Rheumatoid arthritis
  493. CALCIUM CARBONATE\CALCIUM GLUCONATE\CALCIUM LACTATE [Concomitant]
     Active Substance: CALCIUM CARBONATE\CALCIUM GLUCONATE\CALCIUM LACTATE
     Indication: Product used for unknown indication
  494. ALENDRONATE SODIUM [Concomitant]
     Active Substance: ALENDRONATE SODIUM
     Indication: Rheumatoid arthritis
     Route: 048
  495. ATIVAN [Concomitant]
     Active Substance: LORAZEPAM
     Indication: Product used for unknown indication
  496. CETIRIZINE HYDROCHLORIDE\PSEUDOEPHEDRINE HYDROCHLORIDE [Concomitant]
     Active Substance: CETIRIZINE HYDROCHLORIDE\PSEUDOEPHEDRINE HYDROCHLORIDE
     Indication: Rheumatoid arthritis
  497. CHLORHEXIDINE [Concomitant]
     Active Substance: CHLORHEXIDINE
     Indication: Product used for unknown indication
  498. CHLORHEXIDINE [Concomitant]
     Active Substance: CHLORHEXIDINE
     Route: 061
  499. CORTISONE (HYDROCORTISONE) [Concomitant]
     Active Substance: HYDROCORTISONE
     Indication: Rheumatoid arthritis
     Route: 061
  500. CORTISONE (HYDROCORTISONE) [Concomitant]
     Active Substance: HYDROCORTISONE
  501. CORTISONE (HYDROCORTISONE) [Concomitant]
     Active Substance: HYDROCORTISONE
     Route: 048
  502. DOXYCYCLINE HYCLATE [Concomitant]
     Active Substance: DOXYCYCLINE HYCLATE
     Indication: Product used for unknown indication
  503. MORPHINE [Concomitant]
     Active Substance: MORPHINE
     Indication: Product used for unknown indication
  504. ALENDRONIC ACID [Concomitant]
     Active Substance: ALENDRONIC ACID
     Indication: Product used for unknown indication
     Route: 016
  505. ALENDRONIC ACID [Concomitant]
     Active Substance: ALENDRONIC ACID
     Route: 048
  506. ALENDRONIC ACID [Concomitant]
     Active Substance: ALENDRONIC ACID
     Route: 048
  507. PREDNISONE [Concomitant]
     Active Substance: PREDNISONE
     Indication: Product used for unknown indication
     Route: 048
  508. PREDNISONE [Concomitant]
     Active Substance: PREDNISONE
  509. PREDNISONE [Concomitant]
     Active Substance: PREDNISONE
  510. PREDNISONE [Concomitant]
     Active Substance: PREDNISONE
     Route: 048
  511. CHLORHEXIDINE ACETATE [Concomitant]
     Active Substance: CHLORHEXIDINE ACETATE
     Indication: Product used for unknown indication
  512. COSENTYX [Concomitant]
     Active Substance: SECUKINUMAB
     Indication: Rheumatoid arthritis
     Route: 005
  513. COSENTYX [Concomitant]
     Active Substance: SECUKINUMAB
  514. FLUMETHASONE PIVALATE [Concomitant]
     Active Substance: FLUMETHASONE PIVALATE
     Indication: Rheumatoid arthritis
     Route: 058
  515. FLUMETHASONE PIVALATE [Concomitant]
     Active Substance: FLUMETHASONE PIVALATE
  516. NEOMYCIN [Concomitant]
     Active Substance: NEOMYCIN
     Indication: Product used for unknown indication
     Route: 048
  517. PERIOGARD [Concomitant]
     Active Substance: CHLORHEXIDINE GLUCONATE
     Indication: Product used for unknown indication
  518. STELARA [Concomitant]
     Active Substance: USTEKINUMAB
     Indication: Rheumatoid arthritis
     Route: 058
  519. STELARA [Concomitant]
     Active Substance: USTEKINUMAB
  520. STELARA [Concomitant]
     Active Substance: USTEKINUMAB
     Route: 058
  521. STELARA [Concomitant]
     Active Substance: USTEKINUMAB
  522. STELARA [Concomitant]
     Active Substance: USTEKINUMAB
     Route: 058
  523. SULFAMETHOXAZOLE [Concomitant]
     Active Substance: SULFAMETHOXAZOLE
     Indication: Product used for unknown indication
  524. VITAMIN B COMPLEX [Concomitant]
     Active Substance: CYANOCOBALAMIN\DEXPANTHENOL\NIACINAMIDE\PYRIDOXINE HYDROCHLORIDE\RIBOFLAVIN 5^-PHOSPHATE SODIUM\THIA
     Indication: Product used for unknown indication
  525. AMINOSALICYLATE CALCIUM [Concomitant]
     Active Substance: AMINOSALICYLATE CALCIUM
     Indication: Product used for unknown indication
  526. HYALURONIDASE (HUMAN RECOMBINANT) [Concomitant]
     Active Substance: HYALURONIDASE (HUMAN RECOMBINANT)
     Indication: Rheumatoid arthritis
     Route: 058
  527. HYALURONIDASE (HUMAN RECOMBINANT) [Concomitant]
     Active Substance: HYALURONIDASE (HUMAN RECOMBINANT)
     Route: 042
  528. ZOPICLONE [Concomitant]
     Active Substance: ZOPICLONE
     Indication: Product used for unknown indication
  529. TELMISARTAN [Concomitant]
     Active Substance: TELMISARTAN
     Indication: Product used for unknown indication
  530. MYOCHRYSINE [Concomitant]
     Active Substance: GOLD SODIUM THIOMALATE
     Indication: Product used for unknown indication
     Dosage: SOLUTION INTRAMUSCULAR
     Route: 030
  531. DICLOFENAC DIETHYLAMINE [Concomitant]
     Active Substance: DICLOFENAC DIETHYLAMINE
     Indication: Product used for unknown indication
  532. CYCLOSPORINE [Concomitant]
     Active Substance: CYCLOSPORINE
     Indication: Psoriasis
  533. BETAMETHASONE [Concomitant]
     Active Substance: BETAMETHASONE\BETAMETHASONE DIPROPIONATE
     Indication: Product used for unknown indication
     Route: 061
  534. APREMILAST [Concomitant]
     Active Substance: APREMILAST
     Indication: Product used for unknown indication
  535. AMITRIPTYLINE [Concomitant]
     Active Substance: AMITRIPTYLINE
     Indication: Product used for unknown indication
     Route: 048
  536. AMLODIPINE BESYLATE [Concomitant]
     Active Substance: AMLODIPINE BESYLATE
     Indication: Product used for unknown indication
  537. MESALAMINE [Concomitant]
     Active Substance: MESALAMINE
     Indication: Crohn^s disease
  538. PANTOPRAZOLE SODIUM [Concomitant]
     Active Substance: PANTOPRAZOLE SODIUM
     Indication: Product used for unknown indication
  539. PANTOPRAZOLE SODIUM [Concomitant]
     Active Substance: PANTOPRAZOLE SODIUM
     Route: 016
  540. QUETIAPINE [Concomitant]
     Active Substance: QUETIAPINE
     Indication: Product used for unknown indication
  541. CHLORHEXIDINE GLUCONATE\ISOPROPYL ALCOHOL [Concomitant]
     Active Substance: CHLORHEXIDINE GLUCONATE\ISOPROPYL ALCOHOL
     Indication: Product used for unknown indication
  542. FLUMETHASONE PIVALATE [Concomitant]
     Active Substance: FLUMETHASONE PIVALATE
     Indication: Rheumatoid arthritis
     Route: 058
  543. PSEUDOEPHEDRINE HYDROCHLORIDE [Concomitant]
     Active Substance: PSEUDOEPHEDRINE HYDROCHLORIDE
     Indication: Rheumatoid arthritis
  544. PSEUDOEPHEDRINE HYDROCHLORIDE [Concomitant]
     Active Substance: PSEUDOEPHEDRINE HYDROCHLORIDE
     Route: 048
  545. PSEUDOEPHEDRINE HYDROCHLORIDE [Concomitant]
     Active Substance: PSEUDOEPHEDRINE HYDROCHLORIDE
     Route: 064

REACTIONS (176)
  - Adverse event [Unknown]
  - Joint dislocation [Not Recovered/Not Resolved]
  - Arthritis [Not Recovered/Not Resolved]
  - Osteoporosis [Not Recovered/Not Resolved]
  - Bone erosion [Not Recovered/Not Resolved]
  - Joint stiffness [Not Recovered/Not Resolved]
  - Osteoarthritis [Not Recovered/Not Resolved]
  - Exostosis [Not Recovered/Not Resolved]
  - Foot deformity [Not Recovered/Not Resolved]
  - Drug-induced liver injury [Unknown]
  - Synovitis [Not Recovered/Not Resolved]
  - Drug intolerance [Not Recovered/Not Resolved]
  - Hepatic cirrhosis [Not Recovered/Not Resolved]
  - Dizziness [Not Recovered/Not Resolved]
  - Drug hypersensitivity [Not Recovered/Not Resolved]
  - Headache [Not Recovered/Not Resolved]
  - Infection [Not Recovered/Not Resolved]
  - Nausea [Not Recovered/Not Resolved]
  - Pneumonia [Not Recovered/Not Resolved]
  - Retinitis [Not Recovered/Not Resolved]
  - Systemic lupus erythematosus [Not Recovered/Not Resolved]
  - Pericarditis [Not Recovered/Not Resolved]
  - Pemphigus [Not Recovered/Not Resolved]
  - Crohn^s disease [Not Recovered/Not Resolved]
  - Lupus-like syndrome [Not Recovered/Not Resolved]
  - Liver injury [Not Recovered/Not Resolved]
  - Lupus vulgaris [Not Recovered/Not Resolved]
  - Psoriatic arthropathy [Not Recovered/Not Resolved]
  - Arthropathy [Unknown]
  - Duodenal ulcer perforation [Unknown]
  - Helicobacter infection [Unknown]
  - Rheumatic fever [Unknown]
  - Type 2 diabetes mellitus [Unknown]
  - Hospitalisation [Unknown]
  - Autoimmune disorder [Not Recovered/Not Resolved]
  - Breast cancer stage II [Not Recovered/Not Resolved]
  - Deep vein thrombosis postoperative [Unknown]
  - Delirium [Unknown]
  - Dislocation of vertebra [Unknown]
  - Lower limb fracture [Unknown]
  - Lower respiratory tract infection [Unknown]
  - Lung disorder [Unknown]
  - Pulmonary fibrosis [Unknown]
  - Seronegative arthritis [Unknown]
  - Spinal disorder [Unknown]
  - Coeliac disease [Not Recovered/Not Resolved]
  - Drug ineffective [Unknown]
  - Nail disorder [Not Recovered/Not Resolved]
  - Rheumatoid arthritis [Not Recovered/Not Resolved]
  - Abdominal discomfort [Not Recovered/Not Resolved]
  - Alopecia [Not Recovered/Not Resolved]
  - Arthralgia [Not Recovered/Not Resolved]
  - C-reactive protein increased [Not Recovered/Not Resolved]
  - Condition aggravated [Not Recovered/Not Resolved]
  - Decreased appetite [Not Recovered/Not Resolved]
  - Discomfort [Not Recovered/Not Resolved]
  - Ear infection [Not Recovered/Not Resolved]
  - Maternal exposure during pregnancy [Recovered/Resolved]
  - Fatigue [Not Recovered/Not Resolved]
  - General physical health deterioration [Not Recovered/Not Resolved]
  - Glossodynia [Not Recovered/Not Resolved]
  - Hand deformity [Not Recovered/Not Resolved]
  - Hepatic enzyme increased [Not Recovered/Not Resolved]
  - Hypersensitivity [Not Recovered/Not Resolved]
  - Hypoaesthesia [Not Recovered/Not Resolved]
  - Infusion related reaction [Not Recovered/Not Resolved]
  - Joint swelling [Not Recovered/Not Resolved]
  - Laryngitis [Not Recovered/Not Resolved]
  - Malaise [Not Recovered/Not Resolved]
  - Mobility decreased [Not Recovered/Not Resolved]
  - Musculoskeletal stiffness [Not Recovered/Not Resolved]
  - Oedema peripheral [Not Recovered/Not Resolved]
  - Pain [Not Recovered/Not Resolved]
  - Pain in extremity [Not Recovered/Not Resolved]
  - Red blood cell sedimentation rate increased [Not Recovered/Not Resolved]
  - Rash [Not Recovered/Not Resolved]
  - Rheumatoid factor positive [Not Recovered/Not Resolved]
  - Therapeutic product effect decreased [Unknown]
  - Therapeutic product effect incomplete [Unknown]
  - Treatment failure [Unknown]
  - Visual impairment [Not Recovered/Not Resolved]
  - Wound [Not Recovered/Not Resolved]
  - Anti-cyclic citrullinated peptide antibody positive [Not Recovered/Not Resolved]
  - Blister [Not Recovered/Not Resolved]
  - Blood cholesterol increased [Not Recovered/Not Resolved]
  - Diarrhoea [Unknown]
  - Fibromyalgia [Unknown]
  - Hypercholesterolaemia [Unknown]
  - Hypertension [Unknown]
  - Injury [Unknown]
  - Swollen joint count increased [Unknown]
  - Anti-cyclic citrullinated peptide antibody [Not Recovered/Not Resolved]
  - Bronchitis [Unknown]
  - Nasopharyngitis [Unknown]
  - Psoriasis [Unknown]
  - Tachycardia [Unknown]
  - Upper respiratory tract infection [Unknown]
  - Anxiety [Unknown]
  - Asthma [Not Recovered/Not Resolved]
  - Swelling [Unknown]
  - Off label use [Unknown]
  - Abdominal pain upper [Not Recovered/Not Resolved]
  - Chest pain [Not Recovered/Not Resolved]
  - Dyspnoea [Unknown]
  - Vomiting [Unknown]
  - Abdominal pain [Not Recovered/Not Resolved]
  - Adjustment disorder with depressed mood [Not Recovered/Not Resolved]
  - Amnesia [Unknown]
  - Asthenia [Not Recovered/Not Resolved]
  - C-reactive protein [Unknown]
  - C-reactive protein abnormal [Not Recovered/Not Resolved]
  - Confusional state [Unknown]
  - Contusion [Unknown]
  - Depression [Unknown]
  - Drug tolerance decreased [Unknown]
  - Dry mouth [Unknown]
  - Dyspepsia [Unknown]
  - Ear pain [Unknown]
  - Facet joint syndrome [Unknown]
  - Folliculitis [Unknown]
  - Gait disturbance [Unknown]
  - Gait inability [Unknown]
  - Gastrointestinal disorder [Unknown]
  - Grip strength decreased [Unknown]
  - Ill-defined disorder [Unknown]
  - Impaired healing [Unknown]
  - Inflammation [Unknown]
  - Insomnia [Unknown]
  - Irritable bowel syndrome [Unknown]
  - Joint range of motion decreased [Unknown]
  - Lip dry [Unknown]
  - Live birth [Unknown]
  - Liver disorder [Unknown]
  - Liver function test increased [Unknown]
  - Loss of personal independence in daily activities [Unknown]
  - Memory impairment [Unknown]
  - Migraine [Unknown]
  - Muscle injury [Unknown]
  - Muscle spasms [Unknown]
  - Muscle spasticity [Unknown]
  - Muscular weakness [Unknown]
  - Musculoskeletal pain [Unknown]
  - Night sweats [Unknown]
  - Obesity [Unknown]
  - Oedema [Unknown]
  - Paraesthesia [Unknown]
  - Peripheral swelling [Unknown]
  - Peripheral venous disease [Unknown]
  - Pruritus [Unknown]
  - Pyrexia [Unknown]
  - Respiratory disorder [Unknown]
  - Road traffic accident [Unknown]
  - Sciatica [Unknown]
  - Sinusitis [Unknown]
  - Sleep disorder [Unknown]
  - Sleep disorder due to general medical condition, insomnia type [Unknown]
  - Spondylitis [Unknown]
  - Stomatitis [Unknown]
  - Urticaria [Unknown]
  - Walking aid user [Unknown]
  - Weight decreased [Unknown]
  - Weight increased [Unknown]
  - Wheezing [Unknown]
  - Wound infection [Unknown]
  - X-ray abnormal [Unknown]
  - Bursitis [Not Recovered/Not Resolved]
  - Prescribed underdose [Unknown]
  - Therapeutic response decreased [Unknown]
  - Therapy non-responder [Unknown]
  - Treatment noncompliance [Unknown]
  - Medication error [Unknown]
  - Product use issue [Unknown]
  - Injection site reaction [Not Recovered/Not Resolved]
  - Movement disorder [Not Recovered/Not Resolved]
  - Onychomadesis [Not Recovered/Not Resolved]
  - Onychomycosis [Not Recovered/Not Resolved]
